FAERS Safety Report 6611737-8 (Version None)
Quarter: 2010Q1

REPORT INFORMATION
  Report Type: 
  Country: None (occurrence: None)
  Receive Date: 20100301
  Receipt Date: 20100301
  Transmission Date: 20100710
  Serious: Yes (Life-Threatening, Other)
  Sender: FDA-Public Use
  Company Number: None

PATIENT
  Sex: Female
  Weight: 58.9676 kg

DRUGS (1)
  1. DIGOXIN [Suspect]
     Indication: ATRIAL FIBRILLATION
     Dosage: 1 PILL DAILY PO
     Route: 048

REACTIONS (5)
  - ASTHENIA [None]
  - CARDIAC ARREST [None]
  - DIZZINESS [None]
  - HEART RATE DECREASED [None]
  - PRODUCT QUALITY ISSUE [None]
